FAERS Safety Report 7814805-8 (Version None)
Quarter: 2011Q4

REPORT INFORMATION
  Report Type: 
  Country: None (occurrence: None)
  Receive Date: 20111014
  Receipt Date: 20111005
  Transmission Date: 20120403
  Serious: No
  Sender: FDA-Public Use
  Company Number: BR-ROCHE-755773

PATIENT
  Age: 28 Year
  Sex: Female

DRUGS (2)
  1. NUVARING [Concomitant]
     Indication: CONTRACEPTION
     Route: 067
  2. ISOTRETINOIN [Suspect]
     Indication: ACNE
     Route: 065
     Dates: start: 20101001, end: 20110101

REACTIONS (1)
  - PREGNANCY [None]
